FAERS Safety Report 14663832 (Version 1)
Quarter: 2018Q1

REPORT INFORMATION
  Report Type: Spontaneous
  Country: US (occurrence: US)
  Receive Date: 20180321
  Receipt Date: 20180321
  Transmission Date: 20180509
  Serious: Yes (Hospitalization)
  Sender: FDA-Public Use
  Company Number: US-BIOCOMPATIBLES UK LTD-2018BTG01510

PATIENT
  Age: 35 Year
  Sex: Female

DRUGS (4)
  1. CROFAB [Suspect]
     Active Substance: CROTALIDAE POLYVALENT IMMUNE FAB (OVINE)
     Dosage: 4 VIALS, UNK
     Route: 042
     Dates: start: 20020808, end: 20020808
  2. CROFAB [Suspect]
     Active Substance: CROTALIDAE POLYVALENT IMMUNE FAB (OVINE)
     Dosage: 2 VIALS, UNK
     Route: 042
     Dates: start: 20020808, end: 20020808
  3. CROFAB [Suspect]
     Active Substance: CROTALIDAE POLYVALENT IMMUNE FAB (OVINE)
     Dosage: 2 VIALS, UNK
     Route: 042
     Dates: start: 20020808, end: 20020808
  4. CROFAB [Suspect]
     Active Substance: CROTALIDAE POLYVALENT IMMUNE FAB (OVINE)
     Indication: SNAKE BITE
     Dosage: 4 VIALS, UNK
     Route: 042
     Dates: start: 20020808

REACTIONS (9)
  - Neuropathy peripheral [Recovering/Resolving]
  - Ecchymosis [Unknown]
  - Drug ineffective [Unknown]
  - Compartment syndrome [Recovered/Resolved]
  - Peripheral swelling [Unknown]
  - Abscess limb [Unknown]
  - Incorrect drug administration duration [Unknown]
  - Postoperative wound infection [Recovered/Resolved]
  - Pain in extremity [Unknown]

NARRATIVE: CASE EVENT DATE: 200208
